FAERS Safety Report 9839537 (Version 1)
Quarter: 2014Q1

REPORT INFORMATION
  Report Type: Spontaneous
  Country: US (occurrence: US)
  Receive Date: 20140124
  Receipt Date: 20140124
  Transmission Date: 20141002
  Serious: No
  Sender: FDA-Public Use
  Company Number: US-009507513-1401USA007999

PATIENT
  Age: 22 Year
  Sex: Female
  Weight: 63.39 kg

DRUGS (1)
  1. NEXPLANON [Suspect]
     Indication: CONTRACEPTION
     Dosage: UNK
     Route: 059
     Dates: start: 20131213, end: 20140116

REACTIONS (3)
  - Device expulsion [Recovered/Resolved]
  - Wound [Recovering/Resolving]
  - Implant site abscess [Recovering/Resolving]
